FAERS Safety Report 16937432 (Version 1)
Quarter: 2019Q4

REPORT INFORMATION
  Report Type: Report from Study
  Country: US (occurrence: US)
  Receive Date: 20191018
  Receipt Date: 20191018
  Transmission Date: 20200122
  Serious: Yes (Hospitalization, Other)
  Sender: FDA-Public Use
  Company Number: US-JNJFOC-20191022006

PATIENT
  Sex: Female

DRUGS (1)
  1. IMBRUVICA [Suspect]
     Active Substance: IBRUTINIB
     Indication: CHRONIC LYMPHOCYTIC LEUKAEMIA
     Route: 065

REACTIONS (6)
  - Alopecia [Recovered/Resolved]
  - Arthropathy [Recovered/Resolved]
  - Disease progression [Unknown]
  - Gastrointestinal disorder [Recovered/Resolved]
  - Neuropathy peripheral [Unknown]
  - Nail disorder [Recovered/Resolved]

NARRATIVE: CASE EVENT DATE: 201910
